FAERS Safety Report 12772562 (Version 2)
Quarter: 2016Q3

REPORT INFORMATION
  Report Type: Spontaneous
  Country: US (occurrence: US)
  Receive Date: 20160922
  Receipt Date: 20160930
  Transmission Date: 20161109
  Serious: Yes (Death, Hospitalization)
  Sender: FDA-Public Use
  Company Number: US-UNITED THERAPEUTICS-UNT-2016-014784

PATIENT
  Age: 68 Year
  Sex: Female
  Weight: 81.63 kg

DRUGS (2)
  1. REMODULIN [Suspect]
     Active Substance: TREPROSTINIL
     Indication: PULMONARY ARTERIAL HYPERTENSION
     Dosage: 0.0604 ?G/KG, CONTINUING
     Route: 058
     Dates: start: 20160325
  2. REMODULIN [Suspect]
     Active Substance: TREPROSTINIL
     Dosage: 0.101?G/KG, CONTINUING
     Route: 041
     Dates: start: 20160516

REACTIONS (3)
  - Death [Fatal]
  - Asthenia [Unknown]
  - Fall [Unknown]

NARRATIVE: CASE EVENT DATE: 20160916
